FAERS Safety Report 7781359-4 (Version None)
Quarter: 2011Q3

REPORT INFORMATION
  Report Type: 
  Country: None (occurrence: None)
  Receive Date: 20110927
  Receipt Date: 20110920
  Transmission Date: 20111222
  Serious: Yes (Death, Other)
  Sender: FDA-Public Use
  Company Number: US-CEPHALON-2009005628

PATIENT

DRUGS (3)
  1. ASCORBIC ACID [Suspect]
     Indication: MULTIPLE MYELOMA
  2. TRISENOX [Suspect]
     Indication: MULTIPLE MYELOMA
     Route: 041
     Dates: start: 20070314
  3. VELCADE [Suspect]
     Indication: MULTIPLE MYELOMA

REACTIONS (37)
  - ARRHYTHMIA [None]
  - URINARY RETENTION [None]
  - COUGH [None]
  - CHEST PAIN [None]
  - LETHARGY [None]
  - MUSCULAR WEAKNESS [None]
  - HYPOTENSION [None]
  - NAUSEA [None]
  - FATIGUE [None]
  - MUSCULOSKELETAL PAIN [None]
  - ARTHRALGIA [None]
  - DYSPNOEA [None]
  - ABDOMINAL PAIN [None]
  - SKIN ULCER [None]
  - HYPOALBUMINAEMIA [None]
  - INJECTION SITE PAIN [None]
  - OEDEMA [None]
  - BACK PAIN [None]
  - DEHYDRATION [None]
  - MULTIPLE MYELOMA [None]
  - PYREXIA [None]
  - WHITE BLOOD CELL DISORDER [None]
  - ANAEMIA [None]
  - NECK PAIN [None]
  - CONSTIPATION [None]
  - TACHYCARDIA [None]
  - VOMITING [None]
  - NASAL DISORDER [None]
  - MALAISE [None]
  - INSOMNIA [None]
  - DIARRHOEA [None]
  - PULMONARY OEDEMA [None]
  - DECREASED APPETITE [None]
  - PLEURAL EFFUSION [None]
  - URINARY INCONTINENCE [None]
  - ASTHENIA [None]
  - HYPOAESTHESIA [None]
